FAERS Safety Report 22324300 (Version 1)
Quarter: 2023Q2

REPORT INFORMATION
  Report Type: Spontaneous
  Country: US (occurrence: US)
  Receive Date: 20230516
  Receipt Date: 20230516
  Transmission Date: 20230721
  Serious: Yes (Hospitalization, Other)
  Sender: FDA-Public Use
  Company Number: US-ELI_LILLY_AND_COMPANY-US202305007128

PATIENT
  Age: 56 Year
  Sex: Female

DRUGS (2)
  1. TRULICITY [Suspect]
     Active Substance: DULAGLUTIDE
     Indication: Product used for unknown indication
     Dosage: 0.75 MG, UNKNOWN
     Route: 065
  2. LANTUS [Concomitant]
     Active Substance: INSULIN GLARGINE
     Indication: Product used for unknown indication
     Dosage: UNK UNK, EACH EVENING
     Route: 065

REACTIONS (5)
  - Upper limb fracture [Unknown]
  - Fall [Unknown]
  - Blood glucose abnormal [Unknown]
  - Stress [Unknown]
  - Malaise [Unknown]

NARRATIVE: CASE EVENT DATE: 20230510
